FAERS Safety Report 5801356-5 (Version None)
Quarter: 2008Q3

REPORT INFORMATION
  Report Type: 
  Country: None (occurrence: None)
  Receive Date: 20080703
  Receipt Date: 20080703
  Transmission Date: 20090109
  Serious: Yes (Death)
  Sender: FDA-Public Use
  Company Number: None

PATIENT
  Age: 54 Year
  Sex: Male
  Weight: 36.2878 kg

DRUGS (1)
  1. LIPITOR [Suspect]

REACTIONS (1)
  - MUSCLE NECROSIS [None]
